FAERS Safety Report 21054765 (Version 3)
Quarter: 2022Q3

REPORT INFORMATION
  Report Type: Spontaneous
  Country: FR (occurrence: FR)
  Receive Date: 20220707
  Receipt Date: 20220901
  Transmission Date: 20221026
  Serious: Yes (Disabling)
  Sender: FDA-Public Use
  Company Number: FR-KOREA IPSEN Pharma-2022-19193

PATIENT

DRUGS (1)
  1. BOTULINUM TOXIN TYPE A [Suspect]
     Active Substance: BOTULINUM TOXIN TYPE A
     Indication: Skin cosmetic procedure
     Dosage: STRENGTH: 200 UNITS SPEYWOOD
     Route: 065
     Dates: start: 20220610, end: 20220610

REACTIONS (4)
  - Migraine [Unknown]
  - Diarrhoea [Unknown]
  - Vomiting [Unknown]
  - Sick leave [Unknown]

NARRATIVE: CASE EVENT DATE: 20220101
